FAERS Safety Report 8928021 (Version 1)
Quarter: 2012Q4

REPORT INFORMATION
  Report Type: Spontaneous
  Country: US (occurrence: None)
  Receive Date: 20121121
  Receipt Date: 20121121
  Transmission Date: 20130627
  Serious: No
  Sender: FDA-Public Use
  Company Number: None

PATIENT

DRUGS (1)
  1. PRADAXA [Suspect]
     Dates: start: 20120612, end: 20120705

REACTIONS (1)
  - Rectal haemorrhage [None]
